FAERS Safety Report 22836658 (Version 4)
Quarter: 2024Q1

REPORT INFORMATION
  Report Type: Spontaneous
  Country: JP (occurrence: JP)
  Receive Date: 20230818
  Receipt Date: 20240315
  Transmission Date: 20240410
  Serious: Yes (Death, Other)
  Sender: FDA-Public Use
  Company Number: JP-MSD-M2023-23449

PATIENT
  Age: 9 Decade
  Sex: Female
  Weight: 40 kg

DRUGS (2)
  1. KEYTRUDA [Suspect]
     Active Substance: PEMBROLIZUMAB
     Indication: Renal cell carcinoma stage IV
     Dosage: 200 MILLIGRAM, Q3W
     Route: 041
     Dates: start: 20230529, end: 20230731
  2. LENVATINIB MESYLATE [Suspect]
     Active Substance: LENVATINIB MESYLATE
     Indication: Renal cell carcinoma stage IV
     Dosage: 10 MILLIGRAM
     Route: 048
     Dates: start: 20230529, end: 20230731

REACTIONS (5)
  - Cerebral artery embolism [Fatal]
  - Thrombophlebitis migrans [Unknown]
  - Paraneoplastic syndrome [Unknown]
  - Hypertension [Recovering/Resolving]
  - Oedema peripheral [Not Recovered/Not Resolved]

NARRATIVE: CASE EVENT DATE: 20230101
